FAERS Safety Report 8811175 (Version 1)
Quarter: 2012Q4

REPORT INFORMATION
  Report Type: Spontaneous
  Country: US (occurrence: None)
  Receive Date: 20120924
  Receipt Date: 20120924
  Transmission Date: 20130627
  Serious: Yes (Hospitalization)
  Sender: FDA-Public Use
  Company Number: UCM201209-000073

PATIENT
  Age: 45 Year
  Sex: Male

DRUGS (7)
  1. LAMOTRIGINE [Suspect]
     Dosage: 200 mg twice daily
  2. DIVALPROEX SODIUM [Suspect]
  3. RISPERIDONE [Concomitant]
  4. VITAMIN B1 [Concomitant]
  5. VITAMIN D 3 [Concomitant]
  6. TOPIRAMATE [Concomitant]
  7. LORAZEPAM [Concomitant]

REACTIONS (7)
  - Mental status changes [None]
  - Ataxia [None]
  - Dysarthria [None]
  - Toxicity to various agents [None]
  - Drug interaction [None]
  - Aggression [None]
  - Hallucination [None]
